FAERS Safety Report 4603308-X (Version None)
Quarter: 2005Q1

REPORT INFORMATION
  Report Type: 
  Country: None (occurrence: None)
  Receive Date: 20050307
  Receipt Date: 20050223
  Transmission Date: 20050727
  Serious: Yes (Disabling, Other)
  Sender: FDA-Public Use
  Company Number: 200410756BNE

PATIENT
  Age: 54 Year
  Sex: Female
  Weight: 65 kg

DRUGS (1)
  1. CIPROFLOXACIN [Suspect]
     Indication: CYSTOSCOPY
     Dosage: 500 MG, BID, ORAL
     Route: 048
     Dates: start: 20040913, end: 20040918

REACTIONS (8)
  - CONSTIPATION [None]
  - DYSPHAGIA [None]
  - ERUCTATION [None]
  - GASTROINTESTINAL MOTILITY DISORDER [None]
  - GASTROINTESTINAL PAIN [None]
  - LEUKOPENIA [None]
  - ORAL CANDIDIASIS [None]
  - THROMBOCYTOPENIA [None]
